FAERS Safety Report 25057155 (Version 1)
Quarter: 2025Q1

REPORT INFORMATION
  Report Type: Spontaneous
  Country: US (occurrence: US)
  Receive Date: 20250310
  Receipt Date: 20250310
  Transmission Date: 20250408
  Serious: Yes (Other)
  Sender: HIKMA
  Company Number: US-HIKMA PHARMACEUTICALS-US-H14001-25-02151

PATIENT

DRUGS (1)
  1. LEUCOVORIN CALCIUM [Suspect]
     Active Substance: LEUCOVORIN CALCIUM
     Indication: Dystonia
     Dosage: 50 MILLIGRAM, TID
     Route: 065

REACTIONS (4)
  - Dystonia [Unknown]
  - Product dose omission issue [Unknown]
  - Off label use [Unknown]
  - Product use in unapproved indication [Unknown]
